FAERS Safety Report 14474539 (Version 2)
Quarter: 2018Q1

REPORT INFORMATION
  Report Type: Report from Study
  Country: US (occurrence: US)
  Receive Date: 20180201
  Receipt Date: 20180215
  Transmission Date: 20180509
  Serious: No
  Sender: FDA-Public Use
  Company Number: US-JAZZ-2018-US-001478

PATIENT
  Sex: Male

DRUGS (10)
  1. CEFDINIR. [Concomitant]
     Active Substance: CEFDINIR
  2. PANTOPRAZOLE SODIUM. [Concomitant]
     Active Substance: PANTOPRAZOLE SODIUM
  3. LEVOTHYROXINE. [Concomitant]
     Active Substance: LEVOTHYROXINE
  4. XYREM [Suspect]
     Active Substance: SODIUM OXYBATE
     Dosage: 3 G, QD (AT BEDTIME)
     Route: 048
     Dates: start: 201801
  5. ONDANSETRON HCL [Concomitant]
     Active Substance: ONDANSETRON HYDROCHLORIDE
  6. XYREM [Suspect]
     Active Substance: SODIUM OXYBATE
     Indication: SLEEP DISORDER
     Dosage: 1.5 G, BID
     Route: 048
     Dates: start: 201801, end: 201801
  7. MIDODRINE HCL [Concomitant]
     Active Substance: MIDODRINE HYDROCHLORIDE
  8. FOLIC ACID. [Concomitant]
     Active Substance: FOLIC ACID
  9. ENOXAPARIN [Concomitant]
     Active Substance: ENOXAPARIN
  10. CIPROFLOXACIN. [Concomitant]
     Active Substance: CIPROFLOXACIN

REACTIONS (6)
  - Stress [Not Recovered/Not Resolved]
  - Fluid retention [Not Recovered/Not Resolved]
  - Weight gain poor [Unknown]
  - Hepatic function abnormal [Not Recovered/Not Resolved]
  - Cognitive disorder [Unknown]
  - Drug effect prolonged [Unknown]
